FAERS Safety Report 14124581 (Version 2)
Quarter: 2017Q4

REPORT INFORMATION
  Report Type: Spontaneous
  Country: US (occurrence: US)
  Receive Date: 20171025
  Receipt Date: 20171026
  Transmission Date: 20180321
  Serious: No
  Sender: FDA-Public Use
  Company Number: US-PFIZER INC-2017459547

PATIENT
  Age: 68 Year
  Sex: Female
  Weight: 55.79 kg

DRUGS (5)
  1. LYRICA [Interacting]
     Active Substance: PREGABALIN
     Indication: POST HERPETIC NEURALGIA
     Dosage: 300 MG, 2X/DAY
     Dates: start: 2006
  2. CHANTIX [Suspect]
     Active Substance: VARENICLINE TARTRATE
     Indication: EX-TOBACCO USER
     Dosage: UNK
  3. CHANTIX [Interacting]
     Active Substance: VARENICLINE TARTRATE
     Dosage: UNK
     Dates: start: 201708
  4. LIDODERM [Interacting]
     Active Substance: LIDOCAINE
     Indication: POST HERPETIC NEURALGIA
     Dosage: 0.5 %, 1X/DAY (FOREHEAD AT NIGHT)
     Dates: start: 2007
  5. BACLOFEN. [Interacting]
     Active Substance: BACLOFEN
     Indication: POST HERPETIC NEURALGIA
     Dosage: 20 MG, (5 TIMES A DAY)
     Dates: start: 2007

REACTIONS (2)
  - Drug ineffective [Not Recovered/Not Resolved]
  - Drug interaction [Unknown]

NARRATIVE: CASE EVENT DATE: 201709
